FAERS Safety Report 6115935-1 (Version None)
Quarter: 2009Q1

REPORT INFORMATION
  Report Type: 
  Country: None (occurrence: None)
  Receive Date: 20090311
  Receipt Date: 20090305
  Transmission Date: 20090719
  Serious: Yes (Death, Hospitalization)
  Sender: FDA-Public Use
  Company Number: 2009EU000945

PATIENT
  Age: 20 Month
  Sex: Male

DRUGS (2)
  1. PROGRAF [Suspect]
     Indication: LIVER TRANSPLANT
     Dosage: 6 MG, UNKNOWN/D, ORAL
     Route: 048
     Dates: start: 20081126
  2. METILPREDNIZOLON-H (METHYLPREDNISOLONE) [Concomitant]

REACTIONS (13)
  - ADULT T-CELL LYMPHOMA/LEUKAEMIA [None]
  - ANAEMIA [None]
  - BACTERIAL DISEASE CARRIER [None]
  - CARDIAC ARREST [None]
  - COMPUTERISED TOMOGRAM ABNORMAL [None]
  - GRAFT VERSUS HOST DISEASE [None]
  - KLEBSIELLA INFECTION [None]
  - LEUKOPENIA [None]
  - PSEUDOMONAS INFECTION [None]
  - RESPIRATORY FAILURE [None]
  - TACHYCARDIA [None]
  - THROMBOCYTOPENIA [None]
  - TRACHEAL DISORDER [None]
